FAERS Safety Report 7747797-0 (Version None)
Quarter: 2011Q3

REPORT INFORMATION
  Report Type: 
  Country: None (occurrence: None)
  Receive Date: 20110913
  Receipt Date: 20110907
  Transmission Date: 20111222
  Serious: Yes (Hospitalization)
  Sender: FDA-Public Use
  Company Number: CA-ROCHE-801395

PATIENT
  Sex: Male
  Weight: 118.8 kg

DRUGS (6)
  1. TOCILIZUMAB [Suspect]
     Indication: RHEUMATOID ARTHRITIS
     Route: 042
     Dates: start: 20110114, end: 20110729
  2. CRESTOR [Concomitant]
  3. PLAQUENIL [Concomitant]
  4. ASPIRIN [Concomitant]
  5. FLEXERIL [Concomitant]
     Dosage: DOSE:PRN.
  6. METFORMIN HCL [Concomitant]

REACTIONS (3)
  - ACUTE FEBRILE NEUTROPHILIC DERMATOSIS [None]
  - SWELLING FACE [None]
  - INFECTION [None]
